FAERS Safety Report 7902846-1 (Version None)
Quarter: 2011Q4

REPORT INFORMATION
  Report Type: 
  Country: None (occurrence: None)
  Receive Date: 20111104
  Receipt Date: 20111027
  Transmission Date: 20120403
  Serious: Yes (Hospitalization)
  Sender: FDA-Public Use
  Company Number: 2011SP042397

PATIENT
  Age: 42 Year
  Sex: Male

DRUGS (8)
  1. MIRTAZAPINE [Suspect]
     Indication: SLEEP DISORDER
     Dosage: 15 MG ; 30 MG; 15 MG
     Dates: start: 20110615
  2. MIRTAZAPINE [Suspect]
     Indication: IRRITABILITY
     Dosage: 15 MG ; 30 MG; 15 MG
     Dates: start: 20110615
  3. VENTOLIN [Concomitant]
  4. VALPROATE SODIUM [Concomitant]
  5. FENTANYL [Concomitant]
  6. NEXIUM [Concomitant]
  7. DOXEPIN HCL [Concomitant]
  8. OXYCODONE HCL [Concomitant]

REACTIONS (5)
  - DRUG INTOLERANCE [None]
  - CHEST DISCOMFORT [None]
  - SKIN BURNING SENSATION [None]
  - BURNING SENSATION [None]
  - LUNG DISORDER [None]
